FAERS Safety Report 10068808 (Version 2)
Quarter: 2014Q2

REPORT INFORMATION
  Report Type: Spontaneous
  Country: GB (occurrence: GB)
  Receive Date: 20140409
  Receipt Date: 20140424
  Transmission Date: 20141212
  Serious: Yes (Death, Other)
  Sender: FDA-Public Use
  Company Number: PHHY2014GB038216

PATIENT
  Age: 65 Year
  Sex: Female

DRUGS (12)
  1. FOLIC ACID [Suspect]
  2. METHOTREXATE [Suspect]
     Dosage: 5 MG, QW
  3. SIMVASTATIN [Suspect]
     Dosage: 20 MG, QD
  4. WARFARIN [Suspect]
  5. PREDNISOLONE [Suspect]
     Dosage: 15 MG, UNK
  6. ABATACEPT [Suspect]
     Indication: RHEUMATOID ARTHRITIS
     Dosage: 750 MG, QMO (2 INFUSIONS)
     Route: 042
     Dates: start: 201307
  7. HYDROXYCHLOROQUINE [Suspect]
     Dosage: 200 MG, BID
  8. ALENDRONATE [Concomitant]
     Dosage: 70 MG, UNK
  9. CALCICHEW D3 [Concomitant]
     Dosage: 2 DF, (FORTE 2 DAILY)
  10. IMMUNOGLOBULIN [Concomitant]
     Route: 058
  11. IODINE [Concomitant]
     Dosage: 600 MG, UNK
  12. QUININE SULFATE [Concomitant]

REACTIONS (5)
  - Deep vein thrombosis [Fatal]
  - Wound [Fatal]
  - Vascular injury [Fatal]
  - General physical health deterioration [Fatal]
  - Fall [Unknown]
